FAERS Safety Report 13881309 (Version 1)
Quarter: 2017Q3

REPORT INFORMATION
  Report Type: Spontaneous
  Country: US (occurrence: US)
  Receive Date: 20170818
  Receipt Date: 20170818
  Transmission Date: 20171127
  Serious: No
  Sender: FDA-Public Use
  Company Number: US-PFIZER INC-2017355298

PATIENT
  Sex: Female

DRUGS (1)
  1. METHOTREXATE SODIUM. [Suspect]
     Active Substance: METHOTREXATE SODIUM
     Dosage: UNK
     Dates: start: 20170718

REACTIONS (5)
  - Peripheral swelling [Unknown]
  - Drug hypersensitivity [Unknown]
  - Urticaria [Recovered/Resolved]
  - Swelling face [Unknown]
  - Joint swelling [Unknown]
